FAERS Safety Report 14402896 (Version 2)
Quarter: 2018Q4

REPORT INFORMATION
  Report Type: Spontaneous
  Country: US (occurrence: US)
  Receive Date: 20180117
  Receipt Date: 20181025
  Transmission Date: 20190204
  Serious: No
  Sender: FDA-Public Use
  Company Number: US-MYLANLABS-2018M1002135

PATIENT
  Sex: Female

DRUGS (2)
  1. DIAZEPAM MYLAN [Suspect]
     Active Substance: DIAZEPAM
     Indication: POST-TRAUMATIC STRESS DISORDER
  2. DIAZEPAM MYLAN [Suspect]
     Active Substance: DIAZEPAM
     Indication: PANIC ATTACK
     Dosage: UNK
     Route: 048

REACTIONS (2)
  - Wrong technique in product usage process [Recovering/Resolving]
  - Drug ineffective [Recovering/Resolving]
